FAERS Safety Report 4890091-6 (Version None)
Quarter: 2006Q1

REPORT INFORMATION
  Report Type: 
  Country: None (occurrence: None)
  Receive Date: 20060124
  Receipt Date: 20060111
  Transmission Date: 20060701
  Serious: Yes (Other)
  Sender: FDA-Public Use
  Company Number: US-AMGEN-US164420

PATIENT
  Sex: Male

DRUGS (3)
  1. EPOGEN [Suspect]
     Indication: ANAEMIA
     Dates: start: 20050901, end: 20060110
  2. IRON [Concomitant]
  3. VITAMIN B COMPLEX CAP [Concomitant]

REACTIONS (1)
  - APLASIA PURE RED CELL [None]
